FAERS Safety Report 20504407 (Version 1)
Quarter: 2022Q1

REPORT INFORMATION
  Report Type: Report from Study
  Country: BR (occurrence: BR)
  Receive Date: 20220222
  Receipt Date: 20220222
  Transmission Date: 20220424
  Serious: Yes (Disabling)
  Sender: FDA-Public Use
  Company Number: BR-ABBVIE-22K-020-4285128-00

PATIENT
  Sex: Female
  Weight: 54 kg

DRUGS (5)
  1. RINVOQ [Suspect]
     Active Substance: UPADACITINIB
     Indication: Rheumatoid arthritis
     Dosage: FOR TWO DAYS
     Route: 048
  2. RINVOQ [Suspect]
     Active Substance: UPADACITINIB
     Dosage: RESTARTED
     Route: 048
  3. PREDNISONE [Concomitant]
     Active Substance: PREDNISONE
     Indication: Product used for unknown indication
     Route: 048
  4. SEVELAMER HYDROCHLORIDE [Concomitant]
     Active Substance: SEVELAMER HYDROCHLORIDE
     Indication: Renal failure
     Route: 048
  5. FOLIC ACID\IRON POLYMALTOSE [Concomitant]
     Active Substance: FOLIC ACID\IRON POLYMALTOSE
     Indication: Product used for unknown indication
     Route: 048

REACTIONS (3)
  - Gait disturbance [Recovered/Resolved]
  - Pain in extremity [Recovered/Resolved]
  - Fatigue [Recovered/Resolved]
